FAERS Safety Report 9802059 (Version 1)
Quarter: 2014Q1

REPORT INFORMATION
  Report Type: Spontaneous
  Country: US (occurrence: US)
  Receive Date: 20140107
  Receipt Date: 20140107
  Transmission Date: 20141002
  Serious: No
  Sender: FDA-Public Use
  Company Number: US-BIOGENIDEC-2013BI124395

PATIENT
  Sex: Female

DRUGS (4)
  1. TECFIDERA [Suspect]
     Indication: MULTIPLE SCLEROSIS
     Route: 048
     Dates: start: 201310
  2. TECFIDERA [Suspect]
     Indication: MULTIPLE SCLEROSIS
     Route: 048
     Dates: start: 2013
  3. NUVIGIL [Concomitant]
     Indication: FATIGUE
  4. LYRICA [Concomitant]
     Indication: PAIN

REACTIONS (8)
  - Crying [Recovered/Resolved]
  - Emotional disorder [Not Recovered/Not Resolved]
  - Chest pain [Recovered/Resolved]
  - Speech disorder [Unknown]
  - Memory impairment [Recovered/Resolved]
  - Disturbance in attention [Recovered/Resolved]
  - Anger [Recovered/Resolved]
  - Fatigue [Unknown]
